FAERS Safety Report 24199564 (Version 2)
Quarter: 2024Q3

REPORT INFORMATION
  Report Type: Spontaneous
  Country: US (occurrence: US)
  Receive Date: 20240812
  Receipt Date: 20240930
  Transmission Date: 20241016
  Serious: Yes (Other)
  Sender: PFIZER
  Company Number: US-PFIZER INC-202400232328

PATIENT
  Age: 81 Year
  Sex: Female

DRUGS (1)
  1. NIVESTYM [Suspect]
     Active Substance: FILGRASTIM-AAFI
     Dosage: THREE OF THEM

REACTIONS (7)
  - Paralysis [Unknown]
  - Weight decreased [Unknown]
  - Movement disorder [Unknown]
  - Dyspnoea [Unknown]
  - Illness [Unknown]
  - Asthenia [Unknown]
  - Fear of falling [Unknown]
